FAERS Safety Report 4631585-8 (Version None)
Quarter: 2005Q2

REPORT INFORMATION
  Report Type: 
  Country: None (occurrence: None)
  Receive Date: 20050407
  Receipt Date: 20050328
  Transmission Date: 20051028
  Serious: Yes (Hospitalization)
  Sender: FDA-Public Use
  Company Number: 203900

PATIENT
  Age: 44 Year
  Sex: Female

DRUGS (9)
  1. AVONEX [Suspect]
     Indication: MULTIPLE SCLEROSIS
     Dosage: IM
     Route: 030
     Dates: start: 20020101, end: 20040101
  2. AVONEX [Suspect]
     Indication: MULTIPLE SCLEROSIS
     Dosage: IM
     Route: 030
     Dates: start: 20040101, end: 20040801
  3. AVONEX [Suspect]
     Indication: MULTIPLE SCLEROSIS
     Dosage: IM
     Route: 030
     Dates: start: 20040816, end: 20040101
  4. TYLENOL (CAPLET) [Concomitant]
  5. PAXIL [Concomitant]
  6. AMITRIPTYLINE HCL [Concomitant]
  7. PROTONIX [Concomitant]
  8. LOVENOX [Concomitant]
  9. NAFCILLIN SODIUM [Concomitant]

REACTIONS (30)
  - ABSCESS LIMB [None]
  - ANAEMIA [None]
  - ASPIRATION [None]
  - ASTHENIA [None]
  - ATELECTASIS [None]
  - BACK PAIN [None]
  - BLOOD GLUCOSE INCREASED [None]
  - CARDIAC MURMUR [None]
  - CARDIAC TAMPONADE [None]
  - COMPARTMENT SYNDROME [None]
  - CONSTIPATION [None]
  - DEPRESSION [None]
  - ENDOCARDITIS [None]
  - HAEMODYNAMIC INSTABILITY [None]
  - HEADACHE [None]
  - HYPOAESTHESIA [None]
  - MUSCLE CONTRACTURE [None]
  - NEUROPATHY [None]
  - OEDEMA PERIPHERAL [None]
  - PAIN [None]
  - PERICARDIAL EFFUSION [None]
  - PERIPHERAL COLDNESS [None]
  - PERIPHERAL OCCLUSIVE DISEASE [None]
  - PLEURAL EFFUSION [None]
  - RADICULOPATHY [None]
  - RHABDOMYOLYSIS [None]
  - SOMNOLENCE [None]
  - SYSTEMIC INFLAMMATORY RESPONSE SYNDROME [None]
  - URINARY TRACT INFECTION [None]
  - WHITE BLOOD CELL COUNT INCREASED [None]
